FAERS Safety Report 9404861 (Version 1)
Quarter: 2013Q3

REPORT INFORMATION
  Report Type: Spontaneous
  Country: FR (occurrence: FR)
  Receive Date: 20130717
  Receipt Date: 20130717
  Transmission Date: 20140515
  Serious: Yes (Hospitalization)
  Sender: FDA-Public Use
  Company Number: FR-BAYER-2013-083985

PATIENT
  Age: 81 Year
  Sex: Female

DRUGS (5)
  1. CIFLOX [Suspect]
     Indication: ERYSIPELAS
     Dosage: UNK
     Route: 042
     Dates: start: 20130622, end: 20130625
  2. CEFTRIAXONE [Suspect]
     Indication: ERYSIPELAS
     Dosage: UNK
     Route: 042
     Dates: start: 20130621, end: 20130622
  3. PYOSTACINE [Suspect]
     Indication: ERYSIPELAS
     Dosage: UNK
     Dates: start: 20130622, end: 20130625
  4. AUGMENTIN [Concomitant]
     Indication: ERYSIPELAS
     Dosage: 1 G, TID
  5. AMOXICILLIN [Concomitant]
     Indication: ERYSIPELAS

REACTIONS (1)
  - Toxic skin eruption [Not Recovered/Not Resolved]
